FAERS Safety Report 23766176 (Version 3)
Quarter: 2025Q3

REPORT INFORMATION
  Report Type: Report from Study
  Country: IN (occurrence: IN)
  Receive Date: 20240422
  Receipt Date: 20250826
  Transmission Date: 20251020
  Serious: Yes (Other)
  Sender: NOVARTIS
  Company Number: IN-002147023-NVSC2021IN171540

PATIENT
  Age: 51 Year
  Sex: Female

DRUGS (22)
  1. TASIGNA [Suspect]
     Active Substance: NILOTINIB
     Indication: Chronic myeloid leukaemia
     Dosage: 200 MG, BID
     Route: 048
     Dates: start: 20200930
  2. TASIGNA [Suspect]
     Active Substance: NILOTINIB
     Dosage: 400 MG, BID
     Route: 065
     Dates: start: 202105, end: 202107
  3. TASIGNA [Suspect]
     Active Substance: NILOTINIB
     Dosage: 200 MG, BID
     Route: 065
     Dates: start: 20210722, end: 202108
  4. TASIGNA [Suspect]
     Active Substance: NILOTINIB
     Dosage: 400 MG, BID
     Route: 065
     Dates: start: 202108, end: 202108
  5. TASIGNA [Suspect]
     Active Substance: NILOTINIB
     Dosage: 200 MG, BID
     Route: 065
     Dates: start: 202108, end: 202202
  6. TASIGNA [Suspect]
     Active Substance: NILOTINIB
     Dosage: 200 MG, QD
     Route: 065
     Dates: start: 202202, end: 202202
  7. TASIGNA [Suspect]
     Active Substance: NILOTINIB
     Dosage: 200 MG, BID
     Route: 065
     Dates: start: 202202, end: 20220510
  8. TASIGNA [Suspect]
     Active Substance: NILOTINIB
     Dosage: 200 MG, BID
     Route: 065
     Dates: start: 20220310
  9. TASIGNA [Suspect]
     Active Substance: NILOTINIB
     Dosage: 200 MG, BID
     Route: 065
     Dates: start: 20220516
  10. TASIGNA [Suspect]
     Active Substance: NILOTINIB
     Dosage: 200 MG, BID
     Route: 065
     Dates: start: 20220725
  11. TASIGNA [Suspect]
     Active Substance: NILOTINIB
     Dosage: 200 MG, BID
     Route: 065
     Dates: start: 20221020
  12. TASIGNA [Suspect]
     Active Substance: NILOTINIB
     Dosage: 200 MG, BID
     Route: 065
     Dates: start: 20221212
  13. TASIGNA [Suspect]
     Active Substance: NILOTINIB
     Dosage: 200 MG, BID
     Route: 065
     Dates: start: 20230209
  14. TASIGNA [Suspect]
     Active Substance: NILOTINIB
     Dosage: 200 MG, BID
     Route: 065
     Dates: start: 20230405
  15. TASIGNA [Suspect]
     Active Substance: NILOTINIB
     Dosage: 200 MG, BID
     Route: 065
     Dates: start: 20230527
  16. TASIGNA [Suspect]
     Active Substance: NILOTINIB
     Dosage: 200 MG, BID
     Route: 048
     Dates: start: 20230722
  17. TASIGNA [Suspect]
     Active Substance: NILOTINIB
     Route: 065
  18. TASIGNA [Suspect]
     Active Substance: NILOTINIB
     Dosage: 400 MG, BID
     Route: 048
  19. PREDNISOLONE [Concomitant]
     Active Substance: PREDNISOLONE
     Indication: Product used for unknown indication
     Dosage: 5 MG, QD
     Route: 065
  20. Calciem [Concomitant]
     Indication: Product used for unknown indication
     Dosage: UNK UNK, BID
     Route: 048
  21. OMEPRAZOLE [Concomitant]
     Active Substance: OMEPRAZOLE
     Indication: Hyperchlorhydria
     Dosage: 20 MG, QD
     Route: 065
  22. VITAMIN D3 [Concomitant]
     Active Substance: CHOLECALCIFEROL
     Indication: Product used for unknown indication
     Dosage: UNK UNK, BID
     Route: 048

REACTIONS (8)
  - Platelet count decreased [Unknown]
  - Asthenia [Unknown]
  - Pain [Unknown]
  - Haemoglobin decreased [Not Recovered/Not Resolved]
  - Off label use [Unknown]
  - Platelet count abnormal [Unknown]
  - Haemoglobin abnormal [Unknown]
  - White blood cell count abnormal [Unknown]

NARRATIVE: CASE EVENT DATE: 20210701
